FAERS Safety Report 23149111 (Version 1)
Quarter: 2023Q4

REPORT INFORMATION
  Report Type: Spontaneous
  Country: US (occurrence: US)
  Receive Date: 20231106
  Receipt Date: 20231106
  Transmission Date: 20240110
  Serious: No
  Sender: FDA-Public Use
  Company Number: US-PARATEK PHARMACEUTICALS, INC.-2022PTK00330

PATIENT
  Age: 65 Year
  Sex: Male
  Weight: 97.506 kg

DRUGS (3)
  1. NUZYRA [Suspect]
     Active Substance: OMADACYCLINE
     Indication: Infected skin ulcer
     Dosage: 450 MG, 1X/DAY
     Route: 048
     Dates: start: 20220928, end: 20220929
  2. NUZYRA [Suspect]
     Active Substance: OMADACYCLINE
     Indication: Pathogen resistance
     Dosage: 300 MG, 1X/DAY IN THE AM
     Route: 048
     Dates: start: 20220930, end: 20221005
  3. NUZYRA [Suspect]
     Active Substance: OMADACYCLINE
     Dosage: UNK
     Route: 048
     Dates: start: 20221007

REACTIONS (4)
  - Haematocrit increased [Unknown]
  - Red blood cell count increased [Unknown]
  - Product dose omission issue [Recovered/Resolved]
  - Off label use [Not Recovered/Not Resolved]

NARRATIVE: CASE EVENT DATE: 20220928
